FAERS Safety Report 25290838 (Version 2)
Quarter: 2025Q3

REPORT INFORMATION
  Report Type: Spontaneous
  Country: US (occurrence: US)
  Receive Date: 20250510
  Receipt Date: 20250716
  Transmission Date: 20251020
  Serious: No
  Sender: SANOFI AVENTIS
  Company Number: US-SA-2025SA115301

PATIENT
  Age: 26 Year
  Sex: Female

DRUGS (22)
  1. REZUROCK [Suspect]
     Active Substance: BELUMOSUDIL
     Indication: Graft versus host disease
     Dosage: 200 MG, BID
     Route: 048
     Dates: start: 2022
  2. ACYCLOVIR [Concomitant]
     Active Substance: ACYCLOVIR
  3. CEVIMELINE [Concomitant]
     Active Substance: CEVIMELINE
  4. CEVIMELINE [Concomitant]
     Active Substance: CEVIMELINE
  5. CORTEF [Concomitant]
     Active Substance: HYDROCORTISONE
  6. CORTEF [Concomitant]
     Active Substance: HYDROCORTISONE
  7. DOXYCYCLINE HYCLATE [Concomitant]
     Active Substance: DOXYCYCLINE HYCLATE
  8. DOXYCYCLINE HYCLATE [Concomitant]
     Active Substance: DOXYCYCLINE HYCLATE
  9. EFFEXOR [Concomitant]
     Active Substance: VENLAFAXINE HYDROCHLORIDE
  10. ESTRADIOL [Concomitant]
     Active Substance: ESTRADIOL
  11. LORATADINE [Concomitant]
     Active Substance: LORATADINE
  12. MG Plus Protein [Concomitant]
  13. MEDROL [Concomitant]
     Active Substance: METHYLPREDNISOLONE
  14. MEPRON [Concomitant]
     Active Substance: ATOVAQUONE
  15. OXYCODONE [Concomitant]
     Active Substance: OXYCODONE
  16. PANTOPRAZOLE [Concomitant]
     Active Substance: PANTOPRAZOLE
  17. PAROXETINE [Concomitant]
     Active Substance: PAROXETINE
  18. PROGESTERONE [Concomitant]
     Active Substance: PROGESTERONE
  19. WELLBUTRIN SR [Concomitant]
     Active Substance: BUPROPION HYDROCHLORIDE
  20. ZOFRAN [Concomitant]
     Active Substance: ONDANSETRON HYDROCHLORIDE
  21. TACROLIMUS [Concomitant]
     Active Substance: TACROLIMUS
  22. VITAMINS [Concomitant]
     Active Substance: VITAMINS

REACTIONS (1)
  - Product dose omission in error [Unknown]
